FAERS Safety Report 11086622 (Version 1)
Quarter: 2015Q2

REPORT INFORMATION
  Report Type: Spontaneous
  Country: JP (occurrence: JP)
  Receive Date: 20150504
  Receipt Date: 20150504
  Transmission Date: 20150821
  Serious: Yes (Other)
  Sender: FDA-Public Use
  Company Number: JP-ASTRAZENECA-2015SE41063

PATIENT
  Age: 68 Year
  Sex: Male

DRUGS (6)
  1. ROHYPNOL [Concomitant]
     Active Substance: FLUNITRAZEPAM
     Route: 048
  2. SEROQUEL [Suspect]
     Active Substance: QUETIAPINE FUMARATE
     Indication: INSOMNIA
     Dosage: 50 MG PER DAY AFTER DINNER AND AT BEDTIME.
     Route: 048
  3. SEROQUEL [Suspect]
     Active Substance: QUETIAPINE FUMARATE
     Indication: INSOMNIA
     Route: 048
  4. DEPAKENE [Concomitant]
     Active Substance: VALPROIC ACID
     Route: 048
  5. BENZALIN [Concomitant]
     Active Substance: NITRAZEPAM
     Route: 048
  6. DEPAS [Concomitant]
     Active Substance: ETIZOLAM
     Route: 048

REACTIONS (3)
  - Movement disorder [Recovered/Resolved]
  - Intentional product misuse [Unknown]
  - Off label use [Unknown]
